FAERS Safety Report 6867806-0 (Version None)
Quarter: 2010Q3

REPORT INFORMATION
  Report Type: 
  Country: None (occurrence: None)
  Receive Date: 20100722
  Receipt Date: 20100708
  Transmission Date: 20110219
  Serious: Yes (Other)
  Sender: FDA-Public Use
  Company Number: US-SANOFI-AVENTIS-2010SA040589

PATIENT
  Age: 67 Year
  Sex: Female

DRUGS (8)
  1. MULTAQ [Suspect]
     Indication: ATRIAL FIBRILLATION
     Route: 048
     Dates: start: 20090101
  2. AMIODARONE HCL [Concomitant]
  3. COUMADIN [Concomitant]
  4. SYNTHROID [Concomitant]
  5. COZAAR [Concomitant]
     Dates: end: 20100501
  6. TENORMIN [Concomitant]
     Dates: end: 20100601
  7. ANTINEOPLASTIC AGENTS [Concomitant]
  8. DEXAMETHASONE [Concomitant]

REACTIONS (2)
  - ATRIAL FIBRILLATION [None]
  - SLEEP DISORDER [None]
